FAERS Safety Report 10085715 (Version 4)
Quarter: 2016Q2

REPORT INFORMATION
  Report Type: Spontaneous
  Country: US (occurrence: US)
  Receive Date: 20140416
  Receipt Date: 20160617
  Transmission Date: 20160815
  Serious: Yes (Other)
  Sender: FDA-Public Use
  Company Number: ADR-2014-00607

PATIENT
  Age: 48 Year
  Sex: Male

DRUGS (5)
  1. BACLOFEN. [Suspect]
     Active Substance: BACLOFEN
     Dosage: 44.93 MCG/DAY
     Route: 037
  2. BACLOFEN. [Suspect]
     Active Substance: BACLOFEN
     Dosage: 40.05 MCG/DAY
     Route: 037
     Dates: start: 20140214, end: 20140310
  3. SALINE [Suspect]
     Active Substance: SODIUM CHLORIDE
     Route: 037
     Dates: end: 20140722
  4. BACLOFEN. [Suspect]
     Active Substance: BACLOFEN
     Route: 037
     Dates: start: 20120802
  5. BACLOFEN. [Suspect]
     Active Substance: BACLOFEN
     Route: 048

REACTIONS (16)
  - Gastric disorder [Unknown]
  - General physical health deterioration [Unknown]
  - Adverse drug reaction [Unknown]
  - Device malfunction [None]
  - Device connection issue [None]
  - Device infusion issue [None]
  - Feeling drunk [Unknown]
  - Muscle spasms [Unknown]
  - Asthenia [Unknown]
  - Muscle spasticity [Unknown]
  - Pain [Unknown]
  - Dysphonia [Unknown]
  - Feeling abnormal [Unknown]
  - Visual impairment [Unknown]
  - Underdose [Unknown]
  - Overdose [Unknown]

NARRATIVE: CASE EVENT DATE: 2013
